FAERS Safety Report 13771111 (Version 1)
Quarter: 2017Q3

REPORT INFORMATION
  Report Type: Spontaneous
  Country: US (occurrence: US)
  Receive Date: 20170720
  Receipt Date: 20170720
  Transmission Date: 20171127
  Serious: Yes (Life-Threatening, Hospitalization)
  Sender: FDA-Public Use
  Company Number: None

PATIENT
  Age: 42 Year
  Sex: Female
  Weight: 54 kg

DRUGS (1)
  1. FARXIGA [Suspect]
     Active Substance: DAPAGLIFLOZIN PROPANEDIOL
     Indication: TYPE 2 DIABETES MELLITUS
     Dosage: ?          OTHER DOSE:MG;?
     Route: 048
     Dates: start: 20170406, end: 20170412

REACTIONS (8)
  - Diarrhoea [None]
  - Headache [None]
  - Dyspnoea [None]
  - Myalgia [None]
  - Nausea [None]
  - Asthenia [None]
  - Tachypnoea [None]
  - Hyperglycaemia [None]

NARRATIVE: CASE EVENT DATE: 20170412
